FAERS Safety Report 22085356 (Version 2)
Quarter: 2023Q1

REPORT INFORMATION
  Report Type: Spontaneous
  Country: GR (occurrence: GR)
  Receive Date: 20230310
  Receipt Date: 20230315
  Transmission Date: 20230418
  Serious: Yes (Other)
  Sender: FDA-Public Use
  Company Number: GR-CDSU_IT-GR-MEN-086926

PATIENT
  Age: 63 Year
  Sex: Female

DRUGS (1)
  1. HYDROCHLOROTHIAZIDE\OLMESARTAN MEDOXOMIL [Suspect]
     Active Substance: HYDROCHLOROTHIAZIDE\OLMESARTAN MEDOXOMIL
     Indication: Hypertension
     Dosage: 1 DF, QD (20 MG/12.5 MG (20 MG/12.5 MG, 1 IN 1D)
     Route: 048

REACTIONS (1)
  - Terminal ileitis [Unknown]

NARRATIVE: CASE EVENT DATE: 20230301
